FAERS Safety Report 8557301-5 (Version None)
Quarter: 2012Q3

REPORT INFORMATION
  Report Type: 
  Country: None (occurrence: None)
  Receive Date: 20120801
  Receipt Date: 20120727
  Transmission Date: 20120928
  Serious: Yes (Hospitalization, Other)
  Sender: FDA-Public Use
  Company Number: FR-PFIZER INC-2012183687

PATIENT
  Age: 3 Year
  Sex: Male

DRUGS (2)
  1. PEDIATRIC ADVIL [Suspect]
     Indication: VARICELLA
     Dosage: 3 INTAKES ON 48 HOURS
  2. ACETAMINOPHEN [Concomitant]

REACTIONS (1)
  - CELLULITIS [None]
